FAERS Safety Report 9212826 (Version 2)
Quarter: 2014Q3

REPORT INFORMATION
  Report Type: Spontaneous
  Country: US (occurrence: None)
  Receive Date: 20120824
  Receipt Date: 20140905
  Transmission Date: 20150326
  Serious: Yes (Life-Threatening, Hospitalization)
  Sender: FDA-Public Use
  Company Number: A-NJ2012-62644

PATIENT
  Age: 66 Year
  Sex: Female

DRUGS (6)
  1. VELETRI [Suspect]
     Active Substance: EPOPROSTENOL
     Indication: PULMONARY ARTERIAL HYPERTENSION
     Dosage: 16 NG/KG, PER MIN, IV DRIP
     Route: 041
     Dates: start: 20120123
  2. COUMADIN [Concomitant]
     Active Substance: WARFARIN SODIUM
  3. OXYGEN (OXYGEN) [Concomitant]
  4. FLOLAN (EPOPROSTENOL SODIUM) [Concomitant]
  5. SILDENAFIL (SILDENAFIL CITRATE) [Concomitant]
  6. COUMADIN [Concomitant]
     Active Substance: WARFARIN SODIUM

REACTIONS (2)
  - Device occlusion [None]
  - Medical device complication [None]

NARRATIVE: CASE EVENT DATE: 20120308
